FAERS Safety Report 4886133-4 (Version None)
Quarter: 2006Q1

REPORT INFORMATION
  Report Type: 
  Country: None (occurrence: None)
  Receive Date: 20060118
  Receipt Date: 20060118
  Transmission Date: 20060701
  Serious: Yes (Hospitalization)
  Sender: FDA-Public Use
  Company Number: None

PATIENT
  Age: 75 Year
  Sex: Female
  Weight: 69.9 kg

DRUGS (10)
  1. WARFARIN [Suspect]
     Indication: ATRIAL FIBRILLATION
     Dosage: 2 MG PO QD
     Route: 048
  2. CELECOXIB [Suspect]
     Indication: PAIN
     Dosage: 200 MG QD
  3. SENNA S [Concomitant]
  4. CALCIUM GLUCONATE [Concomitant]
  5. VIT D [Concomitant]
  6. FLAX OIL [Concomitant]
  7. POTASSIUM [Concomitant]
  8. LASIX [Concomitant]
  9. ATENOLOL [Concomitant]
  10. DETROL LA [Concomitant]

REACTIONS (3)
  - HAEMATOCRIT DECREASED [None]
  - HAEMOGLOBIN DECREASED [None]
  - RECTAL HAEMORRHAGE [None]
